FAERS Safety Report 13618856 (Version 1)
Quarter: 2017Q2

REPORT INFORMATION
  Report Type: Spontaneous
  Country: US (occurrence: US)
  Receive Date: 20170606
  Receipt Date: 20170606
  Transmission Date: 20170830
  Serious: Yes (Hospitalization)
  Sender: FDA-Public Use
  Company Number: US-BAYER-2017-064424

PATIENT
  Age: 35 Year
  Sex: Female

DRUGS (3)
  1. XARELTO [Suspect]
     Active Substance: RIVAROXABAN
     Indication: DEEP VEIN THROMBOSIS
     Dosage: 15 MG, BID
     Route: 048
     Dates: start: 20160615, end: 20160619
  2. ACETYLSALICYLIC ACID (} 100 MG, FAST RELEASE) [Suspect]
     Active Substance: ASPIRIN
     Indication: TRANSIENT ISCHAEMIC ATTACK
     Dosage: 325 MG, QD
     Route: 048
  3. ACETYLSALICYLIC ACID (} 100 MG, FAST RELEASE) [Suspect]
     Active Substance: ASPIRIN
     Indication: ATRIAL SEPTAL DEFECT

REACTIONS (1)
  - Gastrointestinal haemorrhage [Recovering/Resolving]

NARRATIVE: CASE EVENT DATE: 201606
